FAERS Safety Report 8447108-1 (Version None)
Quarter: 2012Q2

REPORT INFORMATION
  Report Type: 
  Country: None (occurrence: None)
  Receive Date: 20120619
  Receipt Date: 20110711
  Transmission Date: 20120825
  Serious: No
  Sender: FDA-Public Use
  Company Number: US-PFIZER INC-K200200473

PATIENT
  Age: 41 Year
  Sex: Female
  Weight: 46.712 kg

DRUGS (2)
  1. LEVOXYL [Suspect]
     Dosage: 75 UG, 1X/DAY
     Route: 048
  2. LEVOXYL [Suspect]
     Indication: HYPOTHYROIDISM
     Dosage: 50 UG, 1X/DAY
     Route: 048
     Dates: start: 19870101

REACTIONS (9)
  - REGURGITATION [None]
  - NAUSEA [None]
  - DRUG INEFFECTIVE [None]
  - DYSGEUSIA [None]
  - HYPERHIDROSIS [None]
  - ASTHENIA [None]
  - THYROID FUNCTION TEST ABNORMAL [None]
  - ERUCTATION [None]
  - DRUG INTOLERANCE [None]
